FAERS Safety Report 8222252-2 (Version None)
Quarter: 2012Q1

REPORT INFORMATION
  Report Type: 
  Country: None (occurrence: None)
  Receive Date: 20120320
  Receipt Date: 20120315
  Transmission Date: 20120608
  Serious: Yes (Hospitalization)
  Sender: FDA-Public Use
  Company Number: US-GLAXOSMITHKLINE-A0934555A

PATIENT
  Age: 48 Year
  Sex: Male
  Weight: 143.2 kg

DRUGS (11)
  1. GLYBURIDE [Concomitant]
  2. NEXIUM [Concomitant]
  3. METOPROLOL SUCCINATE [Concomitant]
  4. LIPITOR [Concomitant]
  5. CELEBREX [Concomitant]
  6. AVANDAMET [Suspect]
     Indication: DIABETES MELLITUS
     Route: 048
     Dates: start: 20060101
  7. GLUCOPHAGE [Concomitant]
  8. LORAZEPAM [Concomitant]
  9. AVANDIA [Suspect]
     Indication: DIABETES MELLITUS
     Dosage: 4MG TWICE PER DAY
     Route: 048
     Dates: start: 20000418, end: 20070530
  10. ALTACE [Concomitant]
  11. HYDROCHLOROTHIAZIDE [Concomitant]

REACTIONS (2)
  - MYOCARDIAL INFARCTION [None]
  - PAIN [None]
